FAERS Safety Report 11021781 (Version 1)
Quarter: 2015Q2

REPORT INFORMATION
  Report Type: Spontaneous
  Country: US (occurrence: US)
  Receive Date: 20150413
  Receipt Date: 20150413
  Transmission Date: 20150821
  Serious: Yes (Other)
  Sender: FDA-Public Use
  Company Number: US-BAYER-2015-103286

PATIENT
  Age: 26 Year
  Sex: Female

DRUGS (1)
  1. MIRENA [Suspect]
     Active Substance: LEVONORGESTREL
     Dosage: 20 MCG/24HR, CONT
     Route: 015
     Dates: start: 20080624, end: 201209

REACTIONS (10)
  - Papilloedema [None]
  - Tinnitus [None]
  - Eye pain [None]
  - Benign intracranial hypertension [None]
  - Vision blurred [None]
  - Headache [None]
  - Visual impairment [None]
  - Intracranial pressure increased [None]
  - Injury [None]
  - Photophobia [None]

NARRATIVE: CASE EVENT DATE: 20120523
